FAERS Safety Report 24673763 (Version 1)
Quarter: 2024Q4

REPORT INFORMATION
  Report Type: Spontaneous
  Country: US (occurrence: US)
  Receive Date: 20241128
  Receipt Date: 20241128
  Transmission Date: 20250115
  Serious: Yes (Life-Threatening, Hospitalization, Other)
  Sender: AUROBINDO
  Company Number: US-MLMSERVICE-20241108-PI250809-00149-1

PATIENT
  Age: 3 Month
  Sex: Male

DRUGS (3)
  1. AMIODARONE HYDROCHLORIDE [Interacting]
     Active Substance: AMIODARONE HYDROCHLORIDE
     Indication: Supraventricular tachycardia
     Dosage: 2 MILLIGRAM/KILOGRAM, ONCE A DAY
     Route: 065
  2. FLECAINIDE [Interacting]
     Active Substance: FLECAINIDE
     Indication: Supraventricular tachycardia
     Dosage: 80 MILLIGRAM/SQ. METER, ONCE A DAY
     Route: 065
  3. FLECAINIDE [Interacting]
     Active Substance: FLECAINIDE
     Dosage: 60 MILLIGRAM/SQ. METER, ONCE A DAY
     Route: 065

REACTIONS (8)
  - Respiratory distress [Recovering/Resolving]
  - Electrocardiogram QRS complex prolonged [Recovered/Resolved]
  - Metabolic acidosis [Unknown]
  - Bradycardia [Recovered/Resolved]
  - Toxicity to various agents [Unknown]
  - Accidental overdose [Recovered/Resolved]
  - Drug interaction [Recovered/Resolved]
  - Wrong technique in product usage process [Recovered/Resolved]
